FAERS Safety Report 6765711-1 (Version None)
Quarter: 2010Q2

REPORT INFORMATION
  Report Type: 
  Country: None (occurrence: None)
  Receive Date: 20100609
  Receipt Date: 20100601
  Transmission Date: 20101027
  Serious: Yes (Other)
  Sender: FDA-Public Use
  Company Number: 2010-00573

PATIENT
  Age: 62 Year
  Sex: Female
  Weight: 71.6683 kg

DRUGS (1)
  1. QUINAPRIL HCL [Suspect]
     Indication: HYPERTENSION
     Dosage: 10MG (1 IN 1D), PER ORAL
     Route: 048
     Dates: start: 20081201

REACTIONS (1)
  - HAEMANGIOMA OF LIVER [None]
